FAERS Safety Report 17122174 (Version 1)
Quarter: 2019Q4

REPORT INFORMATION
  Report Type: Spontaneous
  Country: JP (occurrence: JP)
  Receive Date: 20191206
  Receipt Date: 20191206
  Transmission Date: 20200122
  Serious: Yes (Hospitalization, Other)
  Sender: FDA-Public Use
  Company Number: JP-PFIZER INC-2019518546

PATIENT
  Age: 1 Year
  Sex: Male
  Weight: 10 kg

DRUGS (11)
  1. DEPAKENE [Concomitant]
     Active Substance: VALPROIC ACID
     Dosage: UNK
     Dates: start: 20191108
  2. DIAPP [Concomitant]
     Active Substance: DIAZEPAM
     Dosage: 4 MG, UNK
     Dates: start: 20191017
  3. VARICELLA-ZOSTER VACCINE NOS [Suspect]
     Active Substance: VARICELLA-ZOSTER VACCINE
     Indication: IMMUNISATION
     Dosage: 0.5 MG, SINGLE
     Route: 058
     Dates: start: 20191017, end: 20191017
  4. E KEPPRA [Concomitant]
     Active Substance: LEVETIRACETAM
     Dosage: UNK
     Dates: start: 20190820
  5. MOVICOL [Concomitant]
     Active Substance: POLYETHYLENE GLYCOL 3350\POTASSIUM CHLORIDE\SODIUM BICARBONATE\SODIUM CHLORIDE
     Dosage: UNK
     Dates: start: 20190903
  6. TRICLORYL [Concomitant]
     Active Substance: TRICLOFOS SODIUM
     Dosage: UNK
  7. SOLU-MEDROL [Suspect]
     Active Substance: METHYLPREDNISOLONE SODIUM SUCCINATE
     Indication: EPILEPSY
     Dosage: 300 MG, 1X/DAY
     Route: 042
     Dates: start: 20191023, end: 20191025
  8. TOPINA [Concomitant]
     Active Substance: TOPIRAMATE
     Dosage: UNK
     Dates: start: 20181106
  9. MAGNESIUM OXIDE. [Concomitant]
     Active Substance: MAGNESIUM OXIDE
     Dosage: UNK
     Dates: start: 20190424
  10. MYSTAN [Concomitant]
     Active Substance: CLOBAZAM
     Dosage: UNK
     Dates: start: 20180302
  11. PHENOBAL [PHENOBARBITAL] [Concomitant]
     Active Substance: PHENOBARBITAL
     Dosage: UNK
     Dates: start: 20180124, end: 20191118

REACTIONS (7)
  - Off label use [Unknown]
  - Product use in unapproved indication [Unknown]
  - Status epilepticus [Unknown]
  - Encephalopathy [Unknown]
  - Facial paralysis [Unknown]
  - Varicella [Recovered/Resolved]
  - Gait deviation [Unknown]

NARRATIVE: CASE EVENT DATE: 20191023
